FAERS Safety Report 20058908 (Version 1)
Quarter: 2021Q4

REPORT INFORMATION
  Report Type: Spontaneous
  Country: US (occurrence: None)
  Receive Date: 20211111
  Receipt Date: 20211111
  Transmission Date: 20220303
  Serious: No
  Sender: FDA-Public Use
  Company Number: None

PATIENT
  Age: 33 Month
  Sex: Male
  Weight: 17 kg

DRUGS (10)
  1. SUGAMMADEX [Suspect]
     Active Substance: SUGAMMADEX
     Indication: Encephalitis autoimmune
     Dosage: OTHER FREQUENCY : ONCE;?
     Route: 040
     Dates: start: 20211109, end: 20211109
  2. ROCURONIUM [Concomitant]
     Active Substance: ROCURONIUM BROMIDE
     Dates: start: 20211109, end: 20211109
  3. TRANEXAMIC ACID [Concomitant]
     Active Substance: TRANEXAMIC ACID
     Dates: start: 20211109, end: 20211109
  4. SODIUM BICARBONATE [Concomitant]
     Active Substance: SODIUM BICARBONATE
     Dates: start: 20211109, end: 20211109
  5. PHENYLEPHRINE [Concomitant]
     Active Substance: PHENYLEPHRINE HYDROCHLORIDE
     Dates: start: 20211109, end: 20211109
  6. ONDANSETRON [Concomitant]
     Active Substance: ONDANSETRON
     Dates: start: 20211109, end: 20211109
  7. MORPHINE [Concomitant]
     Active Substance: MORPHINE
     Dates: start: 20211109, end: 20211109
  8. MIDAZOLAM [Concomitant]
     Active Substance: MIDAZOLAM
     Dates: start: 20211109, end: 20211109
  9. FENTANYL [Concomitant]
     Active Substance: FENTANYL
     Dates: start: 20211109, end: 20211109
  10. CALCIUM GLUCONATE [Concomitant]
     Active Substance: CALCIUM GLUCONATE
     Dates: start: 20211109, end: 20211109

REACTIONS (6)
  - Bradypnoea [None]
  - Respiratory acidosis [None]
  - Hypotension [None]
  - Obstructive airways disorder [None]
  - Mydriasis [None]
  - Hypercapnia [None]

NARRATIVE: CASE EVENT DATE: 20211109
